FAERS Safety Report 7239931-6 (Version None)
Quarter: 2011Q1

REPORT INFORMATION
  Report Type: 
  Country: None (occurrence: None)
  Receive Date: 20110124
  Receipt Date: 20110113
  Transmission Date: 20110831
  Serious: Yes (Hospitalization)
  Sender: FDA-Public Use
  Company Number: ES-BIOGENIDEC-2010BI044478

PATIENT
  Age: 44 Year
  Sex: Male

DRUGS (7)
  1. BIPERIDEN HYDROCHLORIDE TAB [Concomitant]
  2. SIMVASTATIN [Concomitant]
  3. RAMIPRIL [Concomitant]
  4. FLUNITRAZEPAM [Concomitant]
  5. TYSABRI [Suspect]
     Indication: MULTIPLE SCLEROSIS
     Route: 042
     Dates: start: 20080415
  6. ACETYLSALICYLIC ACID [Concomitant]
  7. METOPROLOL [Concomitant]

REACTIONS (1)
  - BIPOLAR DISORDER [None]
